FAERS Safety Report 7684871-1 (Version None)
Quarter: 2011Q3

REPORT INFORMATION
  Report Type: 
  Country: None (occurrence: None)
  Receive Date: 20110816
  Receipt Date: 20110804
  Transmission Date: 20111222
  Serious: Yes (Hospitalization)
  Sender: FDA-Public Use
  Company Number: JP-JNJFOC-20110707664

PATIENT
  Sex: Male
  Weight: 80 kg

DRUGS (4)
  1. HYDROCORTISONE SODIUM SUCCINATE [Suspect]
     Indication: PRODUCT USED FOR UNKNOWN INDICATION
     Route: 042
  2. ALLOPURINOL [Concomitant]
     Indication: HYPERURICAEMIA
  3. REMICADE [Suspect]
     Route: 042
     Dates: start: 20110713
  4. REMICADE [Suspect]
     Indication: PSORIASIS
     Route: 042
     Dates: start: 20110629

REACTIONS (3)
  - BLOOD PRESSURE INCREASED [None]
  - TACHYCARDIA [None]
  - INFUSION RELATED REACTION [None]
